FAERS Safety Report 8856480 (Version 1)
Quarter: 2012Q4

REPORT INFORMATION
  Report Type: Spontaneous
  Country: JP (occurrence: None)
  Receive Date: 20121018
  Receipt Date: 20121018
  Transmission Date: 20130627
  Serious: Yes (Hospitalization)
  Sender: FDA-Public Use
  Company Number: DSA_57430_2012

PATIENT
  Age: 60 Year
  Sex: Male

DRUGS (1)
  1. MACUGEN [Suspect]
     Indication: AGE-RELATED MACULAR DEGENERATION
     Dosage: intravitreal
     Route: 031
     Dates: start: 200904

REACTIONS (1)
  - Retinal haemorrhage [None]
